FAERS Safety Report 5026484-6 (Version None)
Quarter: 2006Q2

REPORT INFORMATION
  Report Type: 
  Country: None (occurrence: None)
  Receive Date: 20060427
  Receipt Date: 20051014
  Transmission Date: 20061013
  Serious: Yes (Other)
  Sender: FDA-Public Use
  Company Number: 2005134098

PATIENT
  Age: 13 Year
  Sex: Female
  Weight: 57.8 kg

DRUGS (2)
  1. GENOTROPIN [Suspect]
     Indication: DWARFISM
     Dosage: 1.44 MG (1.44 MG, DAILY)
     Dates: start: 20050313, end: 20050412
  2. ZOLOFT [Concomitant]

REACTIONS (5)
  - BENIGN INTRACRANIAL HYPERTENSION [None]
  - HEADACHE [None]
  - INTRACRANIAL PRESSURE INCREASED [None]
  - VOMITING [None]
  - WEIGHT DECREASED [None]
